FAERS Safety Report 17298970 (Version 6)
Quarter: 2020Q3

REPORT INFORMATION
  Report Type: Spontaneous
  Country: FR (occurrence: FR)
  Receive Date: 20200121
  Receipt Date: 20200928
  Transmission Date: 20201102
  Serious: Yes (Hospitalization)
  Sender: FDA-Public Use
  Company Number: FR-CELGENEUS-FRA-20200106165

PATIENT
  Age: 11 Year
  Sex: Male
  Weight: 18 kg

DRUGS (11)
  1. VENETOCLAX. [Concomitant]
     Active Substance: VENETOCLAX
     Dosage: 120 MILLIGRAM
     Route: 050
     Dates: start: 20200113
  2. BACTRIM [Concomitant]
     Active Substance: SULFAMETHOXAZOLE\TRIMETHOPRIM
     Indication: PROPHYLAXIS
     Route: 065
  3. VENETOCLAX. [Concomitant]
     Active Substance: VENETOCLAX
     Indication: LEUKAEMIA
     Dosage: 30 MILLIGRAM
     Route: 050
     Dates: start: 20191230, end: 20191230
  4. CHLORHEXIDIN [Concomitant]
     Active Substance: CHLORHEXIDINE
     Indication: DENTAL DISORDER PROPHYLAXIS
     Dosage: 300 MILLILITER
     Route: 061
     Dates: start: 20191230
  5. AZACITIDINE. [Suspect]
     Active Substance: AZACITIDINE
     Indication: HAEMATOLOGICAL MALIGNANCY
     Dosage: 58 MILLIGRAM/SQ. METER
     Route: 042
     Dates: start: 20200102
  6. VENETOCLAX. [Concomitant]
     Active Substance: VENETOCLAX
     Indication: HAEMATOLOGICAL MALIGNANCY
     Dosage: 60 MILLIGRAM
     Route: 050
     Dates: start: 20191231, end: 20191231
  7. AZACITIDINE. [Suspect]
     Active Substance: AZACITIDINE
     Indication: LEUKAEMIA
     Dosage: 75 MILLIGRAM/SQ. METER
     Route: 042
     Dates: start: 20200102
  8. VENETOCLAX. [Concomitant]
     Active Substance: VENETOCLAX
     Dosage: 120 MILLIGRAM
     Route: 050
     Dates: start: 20200101, end: 20200112
  9. SODIUM BICARBONATE. [Concomitant]
     Active Substance: SODIUM BICARBONATE
     Indication: DENTAL DISORDER PROPHYLAXIS
     Dosage: 300 MILLILITER
     Route: 061
     Dates: start: 20191230
  10. ZINC. [Concomitant]
     Active Substance: ZINC
     Indication: DENTAL DISORDER PROPHYLAXIS
     Dosage: 300 MILLILITER
     Route: 061
     Dates: start: 20191230
  11. VENETOCLAX. [Concomitant]
     Active Substance: VENETOCLAX
     Dosage: 125 MILLIGRAM
     Route: 050
     Dates: start: 20200103, end: 20200103

REACTIONS (1)
  - Device related infection [Recovered/Resolved]

NARRATIVE: CASE EVENT DATE: 20200106
